FAERS Safety Report 15962831 (Version 1)
Quarter: 2019Q1

REPORT INFORMATION
  Report Type: Spontaneous
  Country: US (occurrence: US)
  Receive Date: 20190214
  Receipt Date: 20190214
  Transmission Date: 20190417
  Serious: Yes (Hospitalization, Other)
  Sender: FDA-Public Use
  Company Number: US-TEVA-2019-US-1010311

PATIENT
  Age: 37 Year
  Sex: Male

DRUGS (8)
  1. DOXORUBICIN [Suspect]
     Active Substance: DOXORUBICIN
     Indication: SOFT TISSUE SARCOMA
     Dosage: 65 MG/M2 2 ON DAY 1
     Route: 065
     Dates: start: 199506, end: 199508
  2. DOXORUBICIN [Suspect]
     Active Substance: DOXORUBICIN
     Indication: METASTASIS
  3. CISPLATIN. [Suspect]
     Active Substance: CISPLATIN
     Indication: METASTASIS
  4. IFOSFAMIDE. [Suspect]
     Active Substance: IFOSFAMIDE
     Indication: SOFT TISSUE SARCOMA
     Dosage: 2.5 G/M2 A DAY BY CONTINUOUS INFUSION FOR 3 DAYS
     Route: 065
     Dates: start: 199506, end: 199508
  5. CISPLATIN. [Suspect]
     Active Substance: CISPLATIN
     Indication: SOFT TISSUE SARCOMA
     Dosage: 50 MG/M2 ON DAY 1
     Route: 065
     Dates: start: 199506, end: 199508
  6. IFOSFAMIDE. [Suspect]
     Active Substance: IFOSFAMIDE
     Indication: METASTASIS
  7. DACARBAZINE. [Suspect]
     Active Substance: DACARBAZINE
     Indication: METASTASIS
  8. DACARBAZINE. [Suspect]
     Active Substance: DACARBAZINE
     Indication: SOFT TISSUE SARCOMA
     Dosage: 300 MG/M2 2 ON DAYS 1-3
     Route: 065
     Dates: start: 199506, end: 199508

REACTIONS (2)
  - Treatment failure [Unknown]
  - Febrile neutropenia [Unknown]
